FAERS Safety Report 4572694-1 (Version None)
Quarter: 2005Q1

REPORT INFORMATION
  Report Type: 
  Country: None (occurrence: None)
  Receive Date: 20050208
  Receipt Date: 20041130
  Transmission Date: 20050727
  Serious: No
  Sender: FDA-Public Use
  Company Number: US-GLAXOSMITHKLINE-A0535562A

PATIENT
  Sex: Male

DRUGS (2)
  1. PAXIL CR [Suspect]
     Indication: PANIC DISORDER
     Dosage: 12.5MG PER DAY
     Route: 048
  2. CARTIA XT [Concomitant]

REACTIONS (3)
  - HEADACHE [None]
  - PARAESTHESIA [None]
  - SOMNOLENCE [None]
